FAERS Safety Report 9853448 (Version 1)
Quarter: 2014Q1

REPORT INFORMATION
  Report Type: Spontaneous
  Country: US (occurrence: US)
  Receive Date: 20140129
  Receipt Date: 20140129
  Transmission Date: 20141002
  Serious: Yes (Other)
  Sender: FDA-Public Use
  Company Number: US-VIIV HEALTHCARE LIMITED-A1058062A

PATIENT
  Sex: Male

DRUGS (3)
  1. SELZENTRY [Suspect]
     Indication: HIV INFECTION
  2. INTELENCE [Suspect]
  3. HIV TREATMENTS (UNSPECIFIED) [Concomitant]

REACTIONS (3)
  - Lipodystrophy acquired [Unknown]
  - Blood cholesterol increased [Unknown]
  - Deformity [Unknown]
